FAERS Safety Report 8299614-0 (Version None)
Quarter: 2012Q2

REPORT INFORMATION
  Report Type: 
  Country: None (occurrence: None)
  Receive Date: 20120419
  Receipt Date: 20120412
  Transmission Date: 20120825
  Serious: Yes (Hospitalization)
  Sender: FDA-Public Use
  Company Number: US-GLAXOSMITHKLINE-A0974223A

PATIENT
  Age: 71 Year
  Sex: Female
  Weight: 83 kg

DRUGS (1)
  1. MELPHALAN HYDROCHLORIDE [Suspect]
     Indication: STEM CELL TRANSPLANT
     Dosage: 100MGM2 SEE DOSAGE TEXT
     Route: 042
     Dates: start: 20111025, end: 20111026

REACTIONS (3)
  - RESPIRATORY FAILURE [None]
  - PNEUMONITIS [None]
  - LUNG INFILTRATION [None]
